FAERS Safety Report 9139970 (Version 1)
Quarter: 2013Q1

REPORT INFORMATION
  Report Type: Spontaneous
  Country: DE (occurrence: FI)
  Receive Date: 20130305
  Receipt Date: 20130305
  Transmission Date: 20140127
  Serious: Yes (Hospitalization)
  Sender: FDA-Public Use
  Company Number: FI-FRI-1000043100

PATIENT
  Sex: Female
  Weight: 40 kg

DRUGS (16)
  1. ROFLUMILAST [Suspect]
     Indication: CHRONIC OBSTRUCTIVE PULMONARY DISEASE
     Route: 048
     Dates: start: 20120917, end: 20121008
  2. ROFLUMILAST [Suspect]
     Dosage: 500 MCG
     Route: 048
     Dates: start: 20121012, end: 20121123
  3. CALCICHEW-D3 [Concomitant]
  4. THYROXIN [Concomitant]
     Route: 048
  5. SEPTIMUM [Concomitant]
     Route: 048
  6. PARACETAMOL [Concomitant]
     Dosage: 4 DF
     Route: 048
  7. SALBUTAMOL [Concomitant]
     Route: 055
  8. SERETIDE DISCUS [Concomitant]
     Dosage: 4 DF
  9. SPIRIVA [Concomitant]
     Dosage: 1 DF
     Route: 055
  10. ERDOPECT KAPS [Concomitant]
     Dosage: 4 DF
     Route: 048
  11. PULMICORT [Concomitant]
     Dosage: 4 DF
     Dates: start: 20121008, end: 20121012
  12. AVELOX [Concomitant]
     Dosage: 1 DF
     Dates: start: 20121008, end: 20121012
  13. PERFALGAN [Concomitant]
     Route: 042
     Dates: start: 20121008
  14. ZINACEF [Concomitant]
     Route: 042
     Dates: start: 20121008
  15. AMOXICILLIN W/CLAVULANATE POTASSIUM [Concomitant]
     Dosage: 9 DF
     Dates: start: 20121008
  16. ATROVENT COMP [Concomitant]
     Dates: start: 20121008

REACTIONS (2)
  - Pneumonia [Recovered/Resolved]
  - Herpes simplex [Recovered/Resolved]
